FAERS Safety Report 23920926 (Version 1)
Quarter: 2024Q2

REPORT INFORMATION
  Report Type: Spontaneous
  Country: JP (occurrence: JP)
  Receive Date: 20240530
  Receipt Date: 20240530
  Transmission Date: 20240716
  Serious: Yes (Other)
  Sender: FDA-Public Use
  Company Number: JP-PFIZER INC-PV202400069450

PATIENT
  Age: 73 Year
  Sex: Female

DRUGS (1)
  1. METHOTREXATE SODIUM [Suspect]
     Active Substance: METHOTREXATE SODIUM
     Indication: Rheumatoid arthritis
     Dosage: 14 MG
     Route: 048

REACTIONS (4)
  - Cytomegalovirus chorioretinitis [Recovered/Resolved]
  - Ocular lymphoma [Recovering/Resolving]
  - Lymphoproliferative disorder [Recovering/Resolving]
  - Immune system disorder [Unknown]
